FAERS Safety Report 16740213 (Version 1)
Quarter: 2019Q3

REPORT INFORMATION
  Report Type: Spontaneous
  Country: CO (occurrence: CO)
  Receive Date: 20190826
  Receipt Date: 20190826
  Transmission Date: 20191005
  Serious: Yes (Other)
  Sender: FDA-Public Use
  Company Number: CO-PFIZER INC-2016440043

PATIENT
  Age: 64 Year
  Sex: Female

DRUGS (20)
  1. XELJANZ [Suspect]
     Active Substance: TOFACITINIB CITRATE
     Dosage: 5 MG, 2X/DAY
     Route: 048
     Dates: start: 201602, end: 201905
  2. VITAMIN C [Concomitant]
     Active Substance: ASCORBIC ACID
     Dosage: UNK
     Dates: start: 201803
  3. CALCITRIOL. [Concomitant]
     Active Substance: CALCITRIOL
     Dosage: UNK
     Dates: start: 201803
  4. XELJANZ [Suspect]
     Active Substance: TOFACITINIB CITRATE
     Dosage: 5 MG, UNK
     Route: 048
     Dates: start: 2018, end: 201808
  5. ALLEGRA [Concomitant]
     Active Substance: FEXOFENADINE HYDROCHLORIDE
     Dosage: UNK
  6. CRANBERRY. [Concomitant]
     Active Substance: CRANBERRY
     Dosage: UNK
     Dates: start: 2018, end: 2018
  7. XELJANZ [Suspect]
     Active Substance: TOFACITINIB CITRATE
     Dosage: UNK
     Route: 048
     Dates: start: 201903, end: 2019
  8. XELJANZ [Suspect]
     Active Substance: TOFACITINIB CITRATE
     Dosage: UNK
     Route: 048
     Dates: start: 20190501, end: 201905
  9. MONTELUKAST [Concomitant]
     Active Substance: MONTELUKAST SODIUM
     Dosage: UNK
     Dates: start: 201803
  10. CALCIBON [Concomitant]
     Dosage: UNK
     Dates: start: 201803
  11. DESLORATADINE. [Concomitant]
     Active Substance: DESLORATADINE
     Dosage: UNK
     Dates: start: 201803
  12. XELJANZ [Suspect]
     Active Substance: TOFACITINIB CITRATE
     Indication: RHEUMATOID ARTHRITIS
     Dosage: 5 MG, UNK
     Route: 048
     Dates: start: 201509, end: 201801
  13. METHOTREXATE. [Concomitant]
     Active Substance: METHOTREXATE
     Dosage: UNK
  14. CALCIUM [Concomitant]
     Active Substance: CALCIUM
     Dosage: UNK
  15. CRANBERRY. [Concomitant]
     Active Substance: CRANBERRY
     Dosage: UNK
     Dates: start: 201803
  16. VITAMIN D [Concomitant]
     Active Substance: VITAMIN D NOS
     Dosage: UNK
     Dates: start: 201803
  17. ESOMEPRAZOLE. [Concomitant]
     Active Substance: ESOMEPRAZOLE MAGNESIUM
     Dosage: UNK
     Dates: start: 201803
  18. DEFLAZACORT [Concomitant]
     Active Substance: DEFLAZACORT
     Dosage: UNK
     Dates: start: 201803
  19. ETANERCEPT [Concomitant]
     Active Substance: ETANERCEPT
     Dosage: UNK
  20. ARAVA [Concomitant]
     Active Substance: LEFLUNOMIDE
     Dosage: UNK

REACTIONS (22)
  - Pulmonary mass [Unknown]
  - Tooth fracture [Recovered/Resolved]
  - Skin discolouration [Unknown]
  - Malaise [Recovered/Resolved]
  - Influenza [Not Recovered/Not Resolved]
  - Viral infection [Unknown]
  - Transaminases increased [Unknown]
  - Urinary tract infection [Recovered/Resolved]
  - Gingivitis [Unknown]
  - Vomiting [Unknown]
  - Lower respiratory tract infection bacterial [Unknown]
  - Pyrexia [Not Recovered/Not Resolved]
  - Bronchitis [Unknown]
  - Metastases to bone [Unknown]
  - Gastritis [Unknown]
  - Therapeutic response unexpected [Unknown]
  - Gingival swelling [Unknown]
  - Lung disorder [Unknown]
  - Pre-existing condition improved [Unknown]
  - Diarrhoea [Unknown]
  - Conjunctivitis [Unknown]
  - Eye infection [Unknown]

NARRATIVE: CASE EVENT DATE: 2017
